FAERS Safety Report 5901040-3 (Version None)
Quarter: 2008Q3

REPORT INFORMATION
  Report Type: 
  Country: None (occurrence: None)
  Receive Date: 20080929
  Receipt Date: 20080922
  Transmission Date: 20090109
  Serious: Yes (Other)
  Sender: FDA-Public Use
  Company Number: US-ROCHE-467551

PATIENT
  Sex: Female

DRUGS (14)
  1. PEGASYS [Suspect]
     Indication: HEPATITIS C
     Route: 058
     Dates: start: 20060516, end: 20060526
  2. PEGASYS [Suspect]
     Dosage: STRENGTH + FORM:180MCG/.5ML, DOSE SLOWLY INCREASED, RESUMED FULL DOSE IN AUG
     Route: 058
     Dates: start: 20060707
  3. PEGASYS [Suspect]
     Dosage: PATIENT COMPLETED 72 WEEKS OF THERAPY
     Route: 058
     Dates: start: 20060801, end: 20071101
  4. PEGASYS [Suspect]
     Dosage: FORM: PRE-FILLED SYRINGE, RESTARTED. PATIENT IN WEEK 29
     Route: 058
     Dates: start: 20071214
  5. RIBAVIRIN [Suspect]
     Indication: HEPATITIS C
     Route: 048
     Dates: start: 20060516, end: 20060526
  6. RIBAVIRIN [Suspect]
     Dosage: SLOWLY INCREASING DOSAGE AND IN MID AUGUST WAS RESUMED THE FULL DOSE 1200 MG DAILY.
     Route: 048
     Dates: start: 20060707, end: 20070501
  7. RIBAVIRIN [Suspect]
     Dosage: PATIENT COMPLETED 72 WEEKS OF THERAPY
     Route: 048
     Dates: start: 20070501, end: 20071101
  8. RIBAVIRIN [Suspect]
     Route: 065
     Dates: start: 20071214
  9. RIBAVIRIN [Suspect]
     Dosage: DOSAGE LOWERED
     Route: 065
  10. RIBAVIRIN [Suspect]
     Dosage: DOSAGE LOWERED
     Route: 065
  11. RIBAVIRIN [Suspect]
     Dosage: PATIENT IN WEEK 29
     Route: 065
  12. HYDROCHLOROTHIAZIDE [Concomitant]
  13. ALLOPURINOL [Concomitant]
  14. POTASSIUM CHLORIDE [Concomitant]

REACTIONS (32)
  - ALANINE AMINOTRANSFERASE INCREASED [None]
  - AMNESIA [None]
  - ANAEMIA [None]
  - ARTHRALGIA [None]
  - ASPARTATE AMINOTRANSFERASE INCREASED [None]
  - COLD SWEAT [None]
  - COUGH [None]
  - DIARRHOEA [None]
  - DYSGEUSIA [None]
  - DYSPNOEA [None]
  - FATIGUE [None]
  - FRACTURED SACRUM [None]
  - HYPERHIDROSIS [None]
  - HYPOTHYROIDISM [None]
  - IMMUNODEFICIENCY [None]
  - INCREASED TENDENCY TO BRUISE [None]
  - MENTAL IMPAIRMENT [None]
  - NASAL CONGESTION [None]
  - NASAL DRYNESS [None]
  - NAUSEA [None]
  - NEOPLASM SKIN [None]
  - OEDEMA PERIPHERAL [None]
  - ORAL HERPES [None]
  - ORAL PAIN [None]
  - PAROSMIA [None]
  - PHARYNGEAL DISORDER [None]
  - PLATELET COUNT DECREASED [None]
  - RASH PRURITIC [None]
  - RED BLOOD CELL COUNT DECREASED [None]
  - SKIN INFECTION [None]
  - VIRAL INFECTION [None]
  - WEIGHT DECREASED [None]
